FAERS Safety Report 7325734-0 (Version None)
Quarter: 2011Q1

REPORT INFORMATION
  Report Type: 
  Country: None (occurrence: None)
  Receive Date: 20110302
  Receipt Date: 20101210
  Transmission Date: 20110831
  Serious: No
  Sender: FDA-Public Use
  Company Number: US-BAYER-2011-005624

PATIENT
  Sex: Female
  Weight: 73 kg

DRUGS (8)
  1. METFORMIN [Concomitant]
  2. PAROXETINE [Concomitant]
  3. DIOVAN [Concomitant]
  4. FISH OIL [Concomitant]
  5. FERGON [Suspect]
     Indication: VITAMIN SUPPLEMENTATION
     Dosage: UNK
     Route: 048
     Dates: start: 20100101
  6. LOVASTATIN [Concomitant]
  7. OMEPRAZOLE [Concomitant]
  8. NIACIN [Concomitant]

REACTIONS (1)
  - CONSTIPATION [None]
